FAERS Safety Report 23222817 (Version 2)
Quarter: 2024Q1

REPORT INFORMATION
  Report Type: Spontaneous
  Country: FR (occurrence: FR)
  Receive Date: 20231123
  Receipt Date: 20240213
  Transmission Date: 20240410
  Serious: Yes (Hospitalization)
  Sender: FDA-Public Use
  Company Number: FR-TEVA-2023-FR-2947583

PATIENT
  Age: 69 Year
  Sex: Male

DRUGS (3)
  1. LAMOTRIGINE [Suspect]
     Active Substance: LAMOTRIGINE
     Indication: Simple partial seizures
     Route: 065
  2. LEVETIRACETAM [Suspect]
     Active Substance: LEVETIRACETAM
     Indication: Simple partial seizures
     Route: 065
  3. LACOSAMIDE [Suspect]
     Active Substance: LACOSAMIDE
     Indication: Simple partial seizures
     Route: 065

REACTIONS (5)
  - Conjunctivitis [Unknown]
  - Stevens-Johnson syndrome [Recovered/Resolved]
  - Ectropion [Unknown]
  - Stomatitis haemorrhagic [Unknown]
  - Stomatitis necrotising [Unknown]
